FAERS Safety Report 19717323 (Version 1)
Quarter: 2021Q3

REPORT INFORMATION
  Report Type: Report from Study
  Country: CA (occurrence: CA)
  Receive Date: 20210818
  Receipt Date: 20210818
  Transmission Date: 20211014
  Serious: Yes (Hospitalization)
  Sender: FDA-Public Use
  Company Number: CA-TAIHO ONCOLOGY  INC-EU-2021-01939

PATIENT
  Age: 83 Year
  Sex: Male
  Weight: 55.3 kg

DRUGS (4)
  1. LONSURF [Suspect]
     Active Substance: TIPIRACIL HYDROCHLORIDE\TRIFLURIDINE
     Dosage: CYCLE UNKNOWN
     Route: 048
  2. LONSURF [Suspect]
     Active Substance: TIPIRACIL HYDROCHLORIDE\TRIFLURIDINE
     Indication: COLORECTAL CANCER METASTATIC
     Dosage: CYCLE UNKNOWN
     Route: 048
     Dates: start: 20210531
  3. LONSURF [Suspect]
     Active Substance: TIPIRACIL HYDROCHLORIDE\TRIFLURIDINE
     Dosage: CURRENT CYCLE UNKNOWN
     Route: 048
  4. STIVARGA [Suspect]
     Active Substance: REGORAFENIB
     Indication: PRODUCT USED FOR UNKNOWN INDICATION

REACTIONS (10)
  - Malaise [Unknown]
  - Fatigue [Unknown]
  - Radiotherapy [Unknown]
  - Decreased appetite [Unknown]
  - Hypertension [Unknown]
  - Nausea [Unknown]
  - Dizziness [Unknown]
  - Constipation [Unknown]
  - Product dose omission issue [Unknown]
  - Bile duct stone [Unknown]

NARRATIVE: CASE EVENT DATE: 20210614
